FAERS Safety Report 10600918 (Version 5)
Quarter: 2015Q1

REPORT INFORMATION
  Report Type: Spontaneous
  Country: JP (occurrence: JP)
  Receive Date: 20141124
  Receipt Date: 20150217
  Transmission Date: 20150720
  Serious: Yes (Life-Threatening, Hospitalization)
  Sender: FDA-Public Use
  Company Number: JP-ROCHE-1379056

PATIENT
  Age: 73 Year
  Sex: Male
  Weight: 56 kg

DRUGS (17)
  1. XELODA [Suspect]
     Active Substance: CAPECITABINE
     Indication: COLON CANCER RECURRENT
     Route: 048
     Dates: start: 20121002, end: 20121023
  2. ELPLAT [Concomitant]
     Active Substance: OXALIPLATIN
     Indication: COLON CANCER RECURRENT
     Route: 041
     Dates: start: 20121002, end: 20121023
  3. IRINOTECAN HYDROCHLORIDE TRIHYDRATE [Concomitant]
     Active Substance: IRINOTECAN HYDROCHLORIDE
     Indication: COLON CANCER RECURRENT
     Route: 041
     Dates: start: 20130716, end: 20140218
  4. AMLODIPINE [Concomitant]
     Active Substance: AMLODIPINE BESYLATE
     Route: 048
     Dates: start: 20121023, end: 20140315
  5. AVASTIN [Suspect]
     Active Substance: BEVACIZUMAB
     Indication: COLON CANCER RECURRENT
     Route: 041
     Dates: start: 20130716, end: 20140218
  6. 5-FU [Concomitant]
     Active Substance: FLUOROURACIL
     Indication: COLON CANCER RECURRENT
     Route: 041
     Dates: start: 20130716, end: 20140218
  7. LEVOFOLINATE [Concomitant]
     Active Substance: LEVOLEUCOVORIN CALCIUM
     Indication: COLON CANCER RECURRENT
     Route: 041
     Dates: start: 20130716, end: 20140218
  8. ELPLAT [Concomitant]
     Active Substance: OXALIPLATIN
     Indication: COLON CANCER RECURRENT
     Route: 041
     Dates: start: 20121228, end: 20130625
  9. 5-FU [Concomitant]
     Active Substance: FLUOROURACIL
     Indication: COLON CANCER
     Route: 041
     Dates: start: 20121228, end: 20130625
  10. 5-FU [Concomitant]
     Active Substance: FLUOROURACIL
     Indication: COLON CANCER RECURRENT
     Route: 040
     Dates: start: 20130716, end: 20140218
  11. AVASTIN [Suspect]
     Active Substance: BEVACIZUMAB
     Indication: COLON CANCER RECURRENT
     Route: 041
     Dates: start: 20121002, end: 20121023
  12. AVASTIN [Suspect]
     Active Substance: BEVACIZUMAB
     Indication: COLON CANCER RECURRENT
     Route: 041
     Dates: start: 20121228, end: 20130625
  13. 5-FU [Concomitant]
     Active Substance: FLUOROURACIL
     Indication: COLON CANCER RECURRENT
     Route: 040
     Dates: start: 20121228, end: 20130625
  14. TRIMEBUTINE MALEATE [Concomitant]
     Active Substance: TRIMEBUTINE MALEATE
     Route: 048
     Dates: start: 20121120, end: 20140315
  15. FAMOTIDINE. [Concomitant]
     Active Substance: FAMOTIDINE
     Route: 048
     Dates: start: 20121120, end: 20140315
  16. MICARDIS [Concomitant]
     Active Substance: TELMISARTAN
     Route: 048
     Dates: start: 20120920, end: 20140315
  17. LEVOFOLINATE [Concomitant]
     Active Substance: LEVOLEUCOVORIN CALCIUM
     Indication: COLON CANCER RECURRENT
     Route: 041
     Dates: start: 20121228, end: 20130625

REACTIONS (4)
  - Peritonitis [Unknown]
  - Small intestinal perforation [Unknown]
  - Large intestine perforation [Not Recovered/Not Resolved]
  - Wound infection [Unknown]

NARRATIVE: CASE EVENT DATE: 201403
